FAERS Safety Report 6334194-8 (Version None)
Quarter: 2009Q3

REPORT INFORMATION
  Report Type: 
  Country: None (occurrence: None)
  Receive Date: 20090829
  Receipt Date: 20090803
  Transmission Date: 20100115
  Serious: No
  Sender: FDA-Public Use
  Company Number: US-ABBOTT-09P-163-0589237-00

PATIENT
  Sex: Male
  Weight: 99.88 kg

DRUGS (14)
  1. SIMCOR [Suspect]
     Indication: HIGH DENSITY LIPOPROTEIN DECREASED
     Dates: start: 20090723, end: 20090801
  2. SIMCOR [Suspect]
     Indication: LOW DENSITY LIPOPROTEIN INCREASED
  3. COREG [Concomitant]
     Indication: CARDIOVASCULAR EVENT PROPHYLAXIS
  4. ASPIRIN [Concomitant]
     Indication: CARDIAC DISORDER
  5. OMEPRAZOLE [Concomitant]
     Indication: HIATUS HERNIA
  6. FUROSEMIDE [Concomitant]
     Indication: FLUID RETENTION
  7. FORTICAL [Concomitant]
     Indication: OSTEOPENIA
  8. POTASSIUM CHLORIDE [Concomitant]
     Indication: OSTEOPENIA
  9. CALCIUM CARBONATE [Concomitant]
     Indication: OSTEOPENIA
  10. UROXATRAL [Concomitant]
     Indication: PROSTATOMEGALY
  11. CYMBALTA [Concomitant]
     Indication: DEPRESSION
  12. CYMBALTA [Concomitant]
     Indication: NEUROPATHY PERIPHERAL
  13. FISH OIL [Concomitant]
     Indication: ROUTINE HEALTH MAINTENANCE
  14. MULTIPLE VITAMINS [Concomitant]
     Indication: VITAMIN SUPPLEMENTATION

REACTIONS (8)
  - ASTHENIA [None]
  - DIZZINESS [None]
  - FALL [None]
  - FLUSHING [None]
  - HYPERHIDROSIS [None]
  - NAUSEA [None]
  - PHARYNGEAL OEDEMA [None]
  - PRURITUS [None]
